FAERS Safety Report 25913016 (Version 1)
Quarter: 2025Q4

REPORT INFORMATION
  Report Type: Spontaneous
  Country: EU (occurrence: EU)
  Receive Date: 20251013
  Receipt Date: 20251013
  Transmission Date: 20260119
  Serious: Yes (Death, Other)
  Sender: AUROBINDO
  Company Number: EU-ABBVIE-6467500

PATIENT
  Age: 68 Year
  Sex: Female

DRUGS (14)
  1. AZACITIDINE [Suspect]
     Active Substance: AZACITIDINE
     Indication: Acute myeloid leukaemia
     Dosage: 75 MILLIGRAM(END OF CYCLE(7 DAYS))
     Route: 065
     Dates: start: 20240826, end: 20240903
  2. AZACITIDINE [Suspect]
     Active Substance: AZACITIDINE
     Dosage: 75 MILLIGRAM(END OF CYCLE(7 DAYS))
     Route: 065
     Dates: start: 20240924, end: 20241002
  3. AZACITIDINE [Suspect]
     Active Substance: AZACITIDINE
     Dosage: 75 MILLIGRAM(END OF CYCLE(7 DAYS))
     Route: 065
     Dates: start: 20241029, end: 20241104
  4. AZACITIDINE [Suspect]
     Active Substance: AZACITIDINE
     Dosage: 75 MILLIGRAM(END OF CYCLE(7 DAYS))
     Route: 065
     Dates: start: 20241210, end: 20241217
  5. VENETOCLAX [Suspect]
     Active Substance: VENETOCLAX
     Indication: Acute myeloid leukaemia
     Dosage: 100 MILLIGRAM(CYCLE 1,RAMP- UP DOSE)
     Route: 048
     Dates: start: 20240826, end: 20240826
  6. VENETOCLAX [Suspect]
     Active Substance: VENETOCLAX
     Dosage: 200 MILLIGRAM(CYCLE 1, RAMP- UP DOSE)
     Route: 048
     Dates: start: 20240827, end: 20240827
  7. VENETOCLAX [Suspect]
     Active Substance: VENETOCLAX
     Dosage: 400 MILLIGRAM(CYCLE 1, RAMP- UP DOSE
     Route: 048
     Dates: start: 20240828, end: 20240922
  8. VENETOCLAX [Suspect]
     Active Substance: VENETOCLAX
     Dosage: 400 MILLIGRAM(DOSE INTERRUPTED)
     Route: 048
     Dates: start: 20240924, end: 20241002
  9. VENETOCLAX [Suspect]
     Active Substance: VENETOCLAX
     Dosage: UNK(END OF CYCLE(28 DAYS))
     Route: 048
     Dates: start: 20241003, end: 20241021
  10. VENETOCLAX [Suspect]
     Active Substance: VENETOCLAX
     Dosage: 400 MILLIGRAM(CYCLE 3,END OF CYCLE(28 DAYS))
     Route: 048
     Dates: start: 20241029, end: 20241125
  11. VENETOCLAX [Suspect]
     Active Substance: VENETOCLAX
     Dosage: 400 MILLIGRAM(END OF CYCLE(28 DAYS))
     Route: 048
     Dates: start: 20241210, end: 20250125
  12. ALLOPURINOL [Concomitant]
     Active Substance: ALLOPURINOL
     Indication: Prophylaxis
     Dosage: 300 MILLIGRAM, ONCE A DAY
     Route: 048
     Dates: start: 20240801
  13. FIDAXOMICIN [Concomitant]
     Active Substance: FIDAXOMICIN
     Indication: Gastrointestinal infection
     Dosage: 200 MILLIGRAM
     Route: 048
     Dates: start: 20250103, end: 20250119
  14. FIDAXOMICIN [Concomitant]
     Active Substance: FIDAXOMICIN
     Indication: Infection
     Dosage: 200 MILLIGRAM
     Route: 048
     Dates: start: 20241113

REACTIONS (2)
  - Septic shock [Fatal]
  - Gingivitis [Recovered/Resolved]

NARRATIVE: CASE EVENT DATE: 20241002
